FAERS Safety Report 13005854 (Version 1)
Quarter: 2016Q4

REPORT INFORMATION
  Report Type: Spontaneous
  Country: JP (occurrence: JP)
  Receive Date: 20161207
  Receipt Date: 20161207
  Transmission Date: 20170207
  Serious: Yes (Other)
  Sender: FDA-Public Use
  Company Number: JP-PFIZER INC-2016557529

PATIENT

DRUGS (4)
  1. SODIUM HEPARIN [Concomitant]
     Active Substance: HEPARIN SODIUM
     Dosage: 1000 UNITS
  2. VANCOMYCIN HCL [Interacting]
     Active Substance: VANCOMYCIN HYDROCHLORIDE
     Indication: ANTIBIOTIC PROPHYLAXIS
     Dosage: VANCOMYCIN HYDROCHLORIDE 0.5 G (DISSOLVED IN PHYSIOLOGIC SALINE 10 ML)
  3. METHYLPREDNISOLONE SODIUM SUCCINATE. [Suspect]
     Active Substance: METHYLPREDNISOLONE SODIUM SUCCINATE
     Indication: ANTIBIOTIC PROPHYLAXIS
     Dosage: 500 MG (DISSOLVED IN WATER 8 ML FOR INJECTION)
  4. D-MANNITOL [Interacting]
     Active Substance: MANNITOL
     Indication: FLUID REPLACEMENT
     Dosage: 20 %, UNK

REACTIONS (1)
  - Drug interaction [Unknown]
